FAERS Safety Report 4313255-9 (Version None)
Quarter: 2004Q1

REPORT INFORMATION
  Report Type: 
  Country: None (occurrence: None)
  Receive Date: 20040227
  Receipt Date: 20040219
  Transmission Date: 20041129
  Serious: Yes (Death, Hospitalization)
  Sender: FDA-Public Use
  Company Number: RED/04/01/SCH

PATIENT
  Age: 18 Year
  Sex: Male
  Weight: 48 kg

DRUGS (3)
  1. REDIMUNE (IMMUNOGLOBULIN HUMAN NORMAL) [Suspect]
     Indication: AMYOTROPHIC LATERAL SCLEROSIS
     Dosage: 18 G, I.V. INF
     Dates: start: 20040115, end: 20040116
  2. DOSPIR (COMBIVENT) [Concomitant]
  3. RILUTEX RILUZOLE) [Concomitant]

REACTIONS (2)
  - CARDIAC FAILURE [None]
  - TACHYCARDIA [None]
